FAERS Safety Report 6472678-2 (Version None)
Quarter: 2009Q4

REPORT INFORMATION
  Report Type: 
  Country: None (occurrence: None)
  Receive Date: 20091201
  Receipt Date: 20091118
  Transmission Date: 20100525
  Serious: Yes (Hospitalization)
  Sender: FDA-Public Use
  Company Number: 2009SP037141

PATIENT
  Age: 59 Year
  Sex: Male

DRUGS (8)
  1. REMERON [Suspect]
     Indication: DEPRESSION
     Dosage: 90 MG;QD;
  2. VENLAFAXIN (VENLAFAXINE) [Suspect]
     Indication: DEPRESSION
     Dosage: 150 MG;QD;
     Dates: start: 20091020, end: 20091022
  3. SOBRIL [Concomitant]
  4. OLANZAPINE [Concomitant]
  5. NOZINAN [Concomitant]
  6. TRUXAL [Concomitant]
  7. RELPAX [Concomitant]
  8. AKINETON [Concomitant]

REACTIONS (8)
  - ANXIETY [None]
  - CONFUSIONAL STATE [None]
  - DRUG INTERACTION [None]
  - HYPERTHERMIA [None]
  - RESTLESSNESS [None]
  - SEROTONIN SYNDROME [None]
  - TACHYCARDIA [None]
  - TREMOR [None]
